FAERS Safety Report 21297772 (Version 2)
Quarter: 2022Q3

REPORT INFORMATION
  Report Type: Spontaneous
  Country: JP (occurrence: None)
  Receive Date: 20220906
  Receipt Date: 20220921
  Transmission Date: 20221027
  Serious: Yes (Death)
  Sender: FDA-Public Use
  Company Number: 2022A307656

PATIENT
  Age: 81 Year
  Sex: Male

DRUGS (1)
  1. ONDEXXYA [Suspect]
     Active Substance: ANDEXANET ALFA
     Indication: Cerebral haemorrhage
     Dosage: 400 MG INTRAVENOUSLY AT A RATE OF 30 MG/MIN, FOLLOWED BY 480 MG INTRAVENOUSLY AT A RATE OF 4 MG/M...
     Route: 042
     Dates: start: 20220826, end: 20220826

REACTIONS (1)
  - Cerebral haemorrhage [Fatal]

NARRATIVE: CASE EVENT DATE: 20220826
